FAERS Safety Report 11589345 (Version 2)
Quarter: 2015Q4

REPORT INFORMATION
  Report Type: Spontaneous
  Country: US (occurrence: US)
  Receive Date: 20151002
  Receipt Date: 20151009
  Transmission Date: 20160304
  Serious: Yes (Other)
  Sender: FDA-Public Use
  Company Number: US-PFIZER INC-2015284415

PATIENT
  Age: 52 Year
  Sex: Female
  Weight: 86 kg

DRUGS (6)
  1. AMARYL [Concomitant]
     Active Substance: GLIMEPIRIDE
     Dosage: 2 MG, 2X/DAY
  2. LEVOTHYROXINE. [Concomitant]
     Active Substance: LEVOTHYROXINE
     Indication: THYROID DISORDER
     Dosage: 137 MG, 1X/DAY
  3. LYRICA [Suspect]
     Active Substance: PREGABALIN
     Indication: BACK PAIN
     Dosage: 100 MG, 3X/DAY
     Route: 048
  4. AMLODIPINE [Concomitant]
     Active Substance: AMLODIPINE BESYLATE
     Dosage: 10 MG, 1X/DAY
  5. LYRICA [Suspect]
     Active Substance: PREGABALIN
     Indication: DIABETIC NEUROPATHY
  6. SIMVASTATIN. [Concomitant]
     Active Substance: SIMVASTATIN
     Indication: BLOOD CHOLESTEROL
     Dosage: 20 MG, 1X/DAY (WHEN SHE GOES TO HER BED )

REACTIONS (12)
  - Muscle atrophy [Unknown]
  - Pain [Unknown]
  - Intervertebral disc degeneration [Unknown]
  - Depressed mood [Unknown]
  - Intentional product misuse [Unknown]
  - Renal disorder [Unknown]
  - Musculoskeletal stiffness [Unknown]
  - Insomnia [Unknown]
  - Limb discomfort [Unknown]
  - Fall [Unknown]
  - Fibromyalgia [Unknown]
  - Sciatica [Unknown]

NARRATIVE: CASE EVENT DATE: 20140731
